FAERS Safety Report 16262803 (Version 3)
Quarter: 2019Q3

REPORT INFORMATION
  Report Type: Report from Study
  Country: JP (occurrence: JP)
  Receive Date: 20190502
  Receipt Date: 20190923
  Transmission Date: 20191004
  Serious: Yes (Hospitalization, Other)
  Sender: FDA-Public Use
  Company Number: JP-ALXN-A201906382AA

PATIENT

DRUGS (21)
  1. LEVOFLOXACIN HEMIHYDRATE [Concomitant]
     Active Substance: LEVOFLOXACIN
     Dosage: 500 MG, UNK
     Route: 065
     Dates: start: 20181220, end: 20181222
  2. CIPROFLOXACIN. [Concomitant]
     Active Substance: CIPROFLOXACIN
     Indication: PROPHYLAXIS
     Dosage: 600 MG, UNK
     Route: 065
     Dates: start: 20181022, end: 20181031
  3. NEORAL [Concomitant]
     Active Substance: CYCLOSPORINE
     Dosage: 300 MG, DAILY
     Route: 065
     Dates: start: 20180718, end: 20180909
  4. LEVOFLOXACIN HEMIHYDRATE [Concomitant]
     Active Substance: LEVOFLOXACIN
     Indication: PROPHYLAXIS
     Dosage: 500 MG, UNK
     Route: 065
     Dates: start: 20180810, end: 20180820
  5. GENTACIN [Concomitant]
     Active Substance: GENTAMICIN SULFATE
     Indication: PRODUCT USED FOR UNKNOWN INDICATION
     Dosage: UNK, PRN
     Route: 062
     Dates: start: 20180918, end: 20181106
  6. SAWACILLIN [Concomitant]
     Active Substance: AMOXICILLIN
     Dosage: 750 MG, UNK
     Route: 065
     Dates: start: 20190311, end: 20190313
  7. DRUG NOT ADMINISTERED [Concomitant]
     Active Substance: UNSPECIFIED INGREDIENT
     Indication: PROPHYLAXIS
     Dosage: 20 MG, PRN
     Route: 065
     Dates: start: 20190213, end: 20190218
  8. LEVOFLOXACIN HEMIHYDRATE [Concomitant]
     Active Substance: LEVOFLOXACIN
     Dosage: 500 MG, UNK
     Route: 065
     Dates: start: 20190104, end: 20190108
  9. SAWACILLIN [Concomitant]
     Active Substance: AMOXICILLIN
     Dosage: 750 MG, UNK
     Route: 065
     Dates: start: 20190325, end: 20190327
  10. CIPROFLOXACIN. [Concomitant]
     Active Substance: CIPROFLOXACIN
     Dosage: 600 MG, UNK
     Route: 065
     Dates: start: 20181105, end: 20181111
  11. SOLIRIS [Suspect]
     Active Substance: ECULIZUMAB
     Indication: PAROXYSMAL NOCTURNAL HAEMOGLOBINURIA
     Dosage: 600 MG, QW
     Route: 042
     Dates: start: 20180620, end: 20180711
  12. NEORAL [Concomitant]
     Active Substance: CYCLOSPORINE
     Dosage: 250 MG, UNK
     Route: 065
     Dates: start: 20180910
  13. REVOLADE [Concomitant]
     Active Substance: ELTROMBOPAG
     Indication: PAROXYSMAL NOCTURNAL HAEMOGLOBINURIA
     Dosage: 100 MG, UNK
     Route: 065
     Dates: start: 20171023
  14. ADONA                              /00056903/ [Concomitant]
     Active Substance: CARBAZOCHROME SODIUM SULFONATE
     Indication: PAROXYSMAL NOCTURNAL HAEMOGLOBINURIA
     Dosage: 90 MG, UNK
     Route: 065
     Dates: start: 20171120, end: 20180817
  15. SAWACILLIN [Concomitant]
     Active Substance: AMOXICILLIN
     Indication: PROPHYLAXIS
     Dosage: 750 MG, UNK
     Route: 065
     Dates: start: 20190128, end: 20190130
  16. SODIUM PICOSULFATE [Concomitant]
     Active Substance: SODIUM PICOSULFATE
     Indication: PROPHYLAXIS
     Dosage: UNK
     Route: 065
     Dates: start: 20181207
  17. SOLIRIS [Suspect]
     Active Substance: ECULIZUMAB
     Dosage: 900 MG, Q2W
     Route: 042
     Dates: start: 20180718, end: 20190508
  18. NEORAL [Concomitant]
     Active Substance: CYCLOSPORINE
     Indication: PAROXYSMAL NOCTURNAL HAEMOGLOBINURIA
     Dosage: 350 MG, DAILY
     Route: 065
     Dates: start: 20171204, end: 20180717
  19. GRAN [Concomitant]
     Active Substance: FILGRASTIM
     Indication: PAROXYSMAL NOCTURNAL HAEMOGLOBINURIA
     Dosage: 600 ?G, AS APPROPRIATE
     Route: 065
     Dates: start: 20151014
  20. METOCLOPRAMIDE. [Concomitant]
     Active Substance: METOCLOPRAMIDE
     Indication: PROPHYLAXIS
     Dosage: 5 MG, PRN
     Route: 065
     Dates: start: 20180806, end: 20180810
  21. DRUG NOT ADMINISTERED [Concomitant]
     Active Substance: UNSPECIFIED INGREDIENT
     Indication: PRODUCT USED FOR UNKNOWN INDICATION
     Dosage: 360 MG, DAILY
     Route: 065
     Dates: start: 20190408

REACTIONS (7)
  - Blood folate decreased [Recovered/Resolved]
  - Dermal cyst [Recovering/Resolving]
  - Conjunctivitis [Recovered/Resolved]
  - Nasopharyngitis [Recovered/Resolved]
  - Pyrexia [Recovered/Resolved]
  - Upper respiratory tract inflammation [Recovered/Resolved]
  - Mass [Recovering/Resolving]

NARRATIVE: CASE EVENT DATE: 20180731
